FAERS Safety Report 18073396 (Version 1)
Quarter: 2020Q3

REPORT INFORMATION
  Report Type: Report from Study
  Country: US (occurrence: US)
  Receive Date: 20200727
  Receipt Date: 20200727
  Transmission Date: 20201103
  Serious: Yes (Other)
  Sender: FDA-Public Use
  Company Number: US-MYLANLABS-2019M1103306

PATIENT
  Sex: Female
  Weight: 52.15 kg

DRUGS (1)
  1. GLATIRAMER ACETATE INJECTION [Suspect]
     Active Substance: GLATIRAMER ACETATE
     Indication: RELAPSING-REMITTING MULTIPLE SCLEROSIS
     Dosage: 40 MILLIGRAM, 3XW
     Route: 058

REACTIONS (8)
  - Basilar migraine [Unknown]
  - Injection site pain [Unknown]
  - Urinary incontinence [Unknown]
  - Injection site mass [Unknown]
  - Drug ineffective [Unknown]
  - Injection site bruising [Unknown]
  - Gait disturbance [Unknown]
  - Injection site scar [Unknown]
